FAERS Safety Report 15600416 (Version 2)
Quarter: 2019Q4

REPORT INFORMATION
  Report Type: Spontaneous
  Country: DE (occurrence: DE)
  Receive Date: 20181109
  Receipt Date: 20191203
  Transmission Date: 20200122
  Serious: Yes (Other)
  Sender: FDA-Public Use
  Company Number: DE-AUROBINDO-AUR-APL-2018-054234

PATIENT
  Age: 81 Year
  Sex: Female

DRUGS (1)
  1. VALSARTAN 40MG [Suspect]
     Active Substance: VALSARTAN
     Indication: PRODUCT USED FOR UNKNOWN INDICATION
     Dosage: 40 MILLIGRAM, ONCE A DAY
     Route: 048
     Dates: start: 2008

REACTIONS (2)
  - Basal cell carcinoma [Unknown]
  - Nasal inflammation [Unknown]

NARRATIVE: CASE EVENT DATE: 2015
